FAERS Safety Report 22144606 (Version 3)
Quarter: 2023Q2

REPORT INFORMATION
  Report Type: Spontaneous
  Country: FR (occurrence: FR)
  Receive Date: 20230328
  Receipt Date: 20230530
  Transmission Date: 20230722
  Serious: Yes (Other)
  Sender: FDA-Public Use
  Company Number: FR-AFSSAPS-NC2023000301

PATIENT
  Age: 34 Year
  Sex: Female

DRUGS (29)
  1. CARBOPLATIN [Suspect]
     Active Substance: CARBOPLATIN
     Indication: Triple negative breast cancer
     Dosage: 222 MILLIGRAM ( 1 TOTAL)
     Route: 042
     Dates: start: 20221226, end: 20221226
  2. CARBOPLATIN [Suspect]
     Active Substance: CARBOPLATIN
     Indication: Triple negative breast cancer
     Dosage: 225 MILLIGRAM (1 TOTAL)
     Route: 042
     Dates: start: 20230102, end: 20230102
  3. CARBOPLATIN [Suspect]
     Active Substance: CARBOPLATIN
     Dosage: 225 MILLIGRAM (1 TOTAL)
     Route: 042
     Dates: start: 20230109, end: 20230109
  4. CARBOPLATIN [Suspect]
     Active Substance: CARBOPLATIN
     Dosage: 225 MILLIGRAM (1 TOTAL)
     Route: 042
     Dates: start: 20230116, end: 20230116
  5. CARBOPLATIN [Suspect]
     Active Substance: CARBOPLATIN
     Dosage: 225 MILLIGRAM ( 1TOTAL)
     Route: 042
     Dates: start: 20230123, end: 20230123
  6. CARBOPLATIN [Suspect]
     Active Substance: CARBOPLATIN
     Dosage: 225 MILLIGRAM (1 TOTAL)
     Route: 042
     Dates: start: 20230130, end: 20230130
  7. CARBOPLATIN [Suspect]
     Active Substance: CARBOPLATIN
     Dosage: 225 MILLIGRAM (1 TOTAL)
     Route: 042
     Dates: start: 20230207, end: 20230207
  8. CARBOPLATIN [Suspect]
     Active Substance: CARBOPLATIN
     Dosage: 225 MILLIGRAM (1 TOTAL)
     Route: 042
     Dates: start: 20230215, end: 20230215
  9. PACLITAXEL [Suspect]
     Active Substance: PACLITAXEL
     Indication: Triple negative breast cancer
     Dosage: 140 MILLIGRAM ( 1 TOTAL)
     Route: 042
     Dates: start: 20221226, end: 20221226
  10. PACLITAXEL [Suspect]
     Active Substance: PACLITAXEL
     Indication: Triple negative breast cancer
     Dosage: 141 MILLIGRAM ( 1 TOTAL)
     Route: 042
     Dates: start: 20230102, end: 20230102
  11. PACLITAXEL [Suspect]
     Active Substance: PACLITAXEL
     Dosage: 141 MILLIGRAM ( 1 TOTAL)
     Route: 042
     Dates: start: 20230116, end: 20230116
  12. PACLITAXEL [Suspect]
     Active Substance: PACLITAXEL
     Dosage: 141 MILLIGRAM ( 1 TOTAL)
     Route: 042
     Dates: start: 20230123, end: 20230123
  13. PACLITAXEL [Suspect]
     Active Substance: PACLITAXEL
     Dosage: 141 MILLIGRAM ( 1 TOTAL)
     Route: 042
     Dates: start: 20230109, end: 20230109
  14. PACLITAXEL [Suspect]
     Active Substance: PACLITAXEL
     Dosage: 142.5 MILLIGRAM (1 TOTAL)
     Route: 042
     Dates: start: 20230130, end: 20230130
  15. PACLITAXEL [Suspect]
     Active Substance: PACLITAXEL
     Dosage: 142.5 MILLIGRAM (1 TOTAL)
     Route: 042
     Dates: start: 20230207, end: 20230207
  16. PACLITAXEL [Suspect]
     Active Substance: PACLITAXEL
     Dosage: 142.5 MILLIGRAM (1 TOTAL)
     Route: 042
     Dates: start: 20230215, end: 20230215
  17. KEYTRUDA [Suspect]
     Active Substance: PEMBROLIZUMAB
     Indication: Triple negative breast cancer
     Dosage: 200 MILLIGRAM (1 TOTAL), EVERY 3 WEEKS (Q3W)
     Route: 042
     Dates: start: 20221226, end: 20221226
  18. KEYTRUDA [Suspect]
     Active Substance: PEMBROLIZUMAB
     Indication: Triple negative breast cancer
     Dosage: 200 MILLIGRAM (1 TOTAL), EVERY 3 WEEKS (Q3W)
     Route: 042
     Dates: start: 20230116, end: 20230116
  19. KEYTRUDA [Suspect]
     Active Substance: PEMBROLIZUMAB
     Dosage: 200 MILLIGRAM (1 TOTAL)
     Route: 042
     Dates: start: 20230207, end: 20230207
  20. KEYTRUDA [Suspect]
     Active Substance: PEMBROLIZUMAB
     Dosage: 200 MILLIGRAM (1 TOTAL), EVERY 3 WEEKS (Q3W)
     Route: 042
     Dates: start: 20230307, end: 20230307
  21. DOXYCYCLINE [Concomitant]
     Active Substance: DOXYCYCLINE
     Indication: Product used for unknown indication
     Route: 065
  22. IBUPROFEN [Concomitant]
     Active Substance: IBUPROFEN
     Indication: Product used for unknown indication
     Dosage: UNK
     Route: 065
  23. LEVETIRACETAM [Concomitant]
     Active Substance: LEVETIRACETAM
     Indication: Product used for unknown indication
     Dosage: UNK
     Route: 065
  24. SODIUM BICARBONATE [Concomitant]
     Active Substance: SODIUM BICARBONATE
     Indication: Product used for unknown indication
     Route: 065
  25. HYDROCORTISONE [Concomitant]
     Active Substance: HYDROCORTISONE
     Indication: Product used for unknown indication
     Dosage: UNK
     Route: 065
  26. PRIMPERAN [Concomitant]
     Active Substance: METOCLOPRAMIDE HYDROCHLORIDE
     Indication: Product used for unknown indication
     Route: 065
  27. Solupred [Concomitant]
     Indication: Product used for unknown indication
     Route: 065
  28. DOLIPRANE [Concomitant]
     Active Substance: ACETAMINOPHEN
     Indication: Product used for unknown indication
     Route: 065
  29. EBASTINE [Concomitant]
     Active Substance: EBASTINE
     Indication: Product used for unknown indication
     Route: 065

REACTIONS (5)
  - Neuropathy peripheral [Not Recovered/Not Resolved]
  - Drug intolerance [Unknown]
  - Inappropriate schedule of product administration [Unknown]
  - Product use issue [Unknown]
  - Inappropriate schedule of product administration [Unknown]

NARRATIVE: CASE EVENT DATE: 20221229
